FAERS Safety Report 9182266 (Version 1)
Quarter: 2012Q4

REPORT INFORMATION
  Report Type: 
  Country: CA (occurrence: CA)
  Receive Date: 20121030
  Receipt Date: 20121030
  Transmission Date: 20130627
  Serious: Yes (Hospitalization)
  Sender: FDA-Public Use
  Company Number: PHHY2012CA097378

PATIENT
  Age: 72 Year
  Sex: Female

DRUGS (7)
  1. CLOZARIL [Suspect]
  2. CARBOLITHIUM [Suspect]
  3. CALCIUM [Concomitant]
  4. ESTRADIOL [Concomitant]
  5. FENOFIBRATE MICRO [Concomitant]
  6. LITHIUM [Concomitant]
  7. PROVENA [Concomitant]

REACTIONS (1)
  - Hypercalcaemia [Recovered/Resolved]
